FAERS Safety Report 11735301 (Version 2)
Quarter: 2017Q2

REPORT INFORMATION
  Report Type: Spontaneous
  Country: FR (occurrence: FR)
  Receive Date: 20151113
  Receipt Date: 20170523
  Transmission Date: 20170829
  Serious: Yes (Hospitalization)
  Sender: FDA-Public Use
  Company Number: FR-009507513-1511FRA003691

PATIENT
  Age: 35 Year
  Sex: Female

DRUGS (3)
  1. OVITRELLE [Suspect]
     Active Substance: CHORIOGONADOTROPIN ALFA
     Dosage: 1 DF (PRE-FILLED SYRINGE), ONCE
     Route: 058
     Dates: start: 20150711
  2. PUREGON [Suspect]
     Active Substance: FOLLITROPIN
     Dosage: 225 UI THEN 300 UI
     Route: 058
     Dates: start: 2015, end: 20150710
  3. GONAPEPTYL [Suspect]
     Active Substance: TRIPTORELIN ACETATE
     Dosage: 1 DF (PROLONGED RELEASE, PRE-FILLED SYRINGE), ONCE
     Route: 058
     Dates: start: 2015

REACTIONS (2)
  - Pain [Recovered/Resolved]
  - Ovarian hyperstimulation syndrome [Recovered/Resolved]

NARRATIVE: CASE EVENT DATE: 20150725
